FAERS Safety Report 7074070-9 (Version None)
Quarter: 2010Q4

REPORT INFORMATION
  Report Type: 
  Country: None (occurrence: None)
  Receive Date: 20101029
  Receipt Date: 20101019
  Transmission Date: 20110411
  Serious: Yes (Life-Threatening, Hospitalization)
  Sender: FDA-Public Use
  Company Number: BE-ROCHE-726242

PATIENT
  Sex: Female
  Weight: 60 kg

DRUGS (17)
  1. ROACTEMRA [Suspect]
     Indication: RHEUMATOID ARTHRITIS
     Route: 042
     Dates: start: 20090723, end: 20100401
  2. ROACTEMRA [Suspect]
     Route: 042
     Dates: start: 20100401, end: 20100401
  3. ROACTEMRA [Suspect]
     Route: 042
     Dates: start: 20100601, end: 20100601
  4. ROACTEMRA [Suspect]
     Route: 042
     Dates: start: 20100701, end: 20100701
  5. ROACTEMRA [Suspect]
     Route: 042
     Dates: start: 20100812, end: 20100812
  6. PREDNISOLONE [Concomitant]
     Indication: RHEUMATOID ARTHRITIS
     Dosage: PAST THERAPY
     Route: 048
  7. PREDNISOLONE [Concomitant]
     Route: 048
  8. NAPROXEN [Concomitant]
     Indication: RHEUMATOID ARTHRITIS
     Dosage: PAST THERAPY
     Route: 048
  9. NAPROXEN [Concomitant]
     Dosage: DRUG REPORTED AS: NAPROXEN EG
     Route: 048
  10. DAFALGAN [Concomitant]
     Route: 048
  11. TRADONAL [Concomitant]
     Dosage: DRUG REPORTED AS: TRADONOL ODIS. FREQUENCY REPORTED AS: IN
     Route: 048
  12. EMCORETIC [Concomitant]
     Dosage: DRUG: EMCORETIC MITIS(5MG BISOPROLOL AND 12.5 MG HYDROCHLOORTHIAZIDE). DOSE: 5/12.5 MG
     Route: 048
  13. MOTILIUM [Concomitant]
     Route: 048
  14. ZOLPIDEM TARTRATE [Concomitant]
     Route: 048
  15. SYMBICORT [Concomitant]
     Dosage: DOSE: FORMOTEROL: 4.5 UG AND BUDESONIDE 160 UG PER DOSE
     Route: 055
  16. ZANTAC [Concomitant]
     Route: 048
  17. CETIRIZINE HCL [Concomitant]
     Route: 048

REACTIONS (8)
  - ANAEMIA [None]
  - ASTHENIA [None]
  - DECREASED APPETITE [None]
  - DEPRESSION [None]
  - DIARRHOEA [None]
  - PNEUMONIA [None]
  - PYOTHORAX [None]
  - RHINITIS [None]
